FAERS Safety Report 9000977 (Version 1)
Quarter: 2012Q4

REPORT INFORMATION
  Report Type: Spontaneous
  Country: DE (occurrence: None)
  Receive Date: 20121226
  Receipt Date: 20121226
  Transmission Date: 20130627
  Serious: Yes (Life-Threatening)
  Sender: FDA-Public Use
  Company Number: AG-2012-2010

PATIENT
  Age: 76 Year
  Sex: Female

DRUGS (13)
  1. CHLORAMBUCIL (CHLORAMBUCIL) (UNKNOWN) [Suspect]
     Indication: B-CELL LYMPHOMA
     Dosage: (18 Milligram, 4 day cycle), Oral
     Route: 048
  2. RITUXIMAB [Suspect]
     Indication: B-CELL LYMPHOMA
     Dosage: (712 Milligram, 1 in 1 Cyclical), Intravenous (not otherwise specified)
     Route: 042
     Dates: start: 20080524
  3. MITOXANTRONE [Suspect]
     Indication: B-CELL LYMPHOMA
     Route: 042
     Dates: start: 20080526
  4. PREDNISOLONE [Suspect]
     Indication: B-CELL LYMPHOMA
     Dates: start: 20080526
  5. NEXIUM (ESOMEPRAZOLE) [Concomitant]
  6. GABAPENTIN (GABAPENTIN) [Concomitant]
  7. COTRIM FORTE (SULFAMETHOXAZOLE ANDTRIMETHOPRIM) [Concomitant]
  8. LANTUS (INSULIN GLARGINE) [Concomitant]
  9. ESIDRIX (HYDROCHLOROTHIAZIDE) [Concomitant]
  10. TEGRETOL (CARBAMAZEPINE) UNKNOWN [Concomitant]
  11. ACTRAPID (INSULIN (HUMAN) ) [Concomitant]
  12. RAMIPRIL (RAMIPRIL) [Concomitant]
  13. ZYLORIC (ALLOPURINOL) [Concomitant]

REACTIONS (1)
  - Pulmonary embolism [None]
